FAERS Safety Report 13596236 (Version 1)
Quarter: 2017Q2

REPORT INFORMATION
  Report Type: Spontaneous
  Country: US (occurrence: US)
  Receive Date: 20170531
  Receipt Date: 20170531
  Transmission Date: 20170830
  Serious: No
  Sender: FDA-Public Use
  Company Number: US-JNJFOC-20170320338

PATIENT
  Age: 84 Year
  Sex: Female
  Weight: 61.69 kg

DRUGS (4)
  1. SENNA S [Concomitant]
     Active Substance: DOCUSATE SODIUM\SENNA LEAF
     Indication: IRRITABLE BOWEL SYNDROME
     Route: 065
  2. HYDROCHLOROTHIAZIDE. [Concomitant]
     Active Substance: HYDROCHLOROTHIAZIDE
     Indication: DIURETIC THERAPY
     Dosage: 1 TABLET/DAY
     Route: 065
  3. TYLENOL REGULAR STRENGTH [Suspect]
     Active Substance: ACETAMINOPHEN
     Indication: ARTHRALGIA
     Route: 048
     Dates: start: 20170316, end: 20170316
  4. ZETIA [Concomitant]
     Active Substance: EZETIMIBE
     Indication: GASTRIC DISORDER
     Route: 065

REACTIONS (3)
  - Inappropriate schedule of drug administration [Unknown]
  - Underdose [Unknown]
  - Drug ineffective [Unknown]

NARRATIVE: CASE EVENT DATE: 20170316
